FAERS Safety Report 7126876-5 (Version None)
Quarter: 2010Q4

REPORT INFORMATION
  Report Type: 
  Country: None (occurrence: None)
  Receive Date: 20101129
  Receipt Date: 20101123
  Transmission Date: 20110411
  Serious: Yes (Hospitalization)
  Sender: FDA-Public Use
  Company Number: US-AMGEN-KDC402053

PATIENT

DRUGS (14)
  1. AMG 479 [Suspect]
     Indication: NEOPLASM
     Dosage: 1332 MG, Q3WK
     Route: 042
     Dates: start: 20091215
  2. PACLITAXEL [Suspect]
     Dosage: 200 MG/M2, Q3WK
     Route: 042
     Dates: start: 20091214, end: 20100308
  3. CARBOPLATIN [Suspect]
     Dosage: UNK UNK, Q3WK
     Route: 042
     Dates: start: 20091214, end: 20100308
  4. ARANESP [Suspect]
     Dosage: 322 A?G, Q2WK
     Route: 058
     Dates: start: 20100301
  5. SPIRONOLACTONE [Concomitant]
     Dosage: 12.5 MG, QD
     Route: 048
     Dates: start: 20100108
  6. OLMESARTAN MEDOXOMIL [Concomitant]
     Dosage: 10 MG, QD
     Route: 048
     Dates: start: 20100308
  7. SUCRALFATE [Concomitant]
     Dosage: 1 G, QID
     Route: 048
     Dates: start: 20091222
  8. CARVEDILOL [Concomitant]
     Dosage: 12.5 MG, BID
     Route: 048
     Dates: start: 20100123
  9. SIMVASTATIN [Concomitant]
     Dosage: 20 MG, QD
     Route: 048
     Dates: start: 20091124
  10. MAGNESIUM CHLORIDE [Concomitant]
     Dosage: UNK UNK, QD
     Route: 048
  11. MULTI-VITAMINS [Concomitant]
     Dosage: UNK UNK, QD
     Route: 048
  12. OMEPRAZOLE [Concomitant]
     Dosage: 20 MG, BID
     Route: 048
  13. IRBESARTAN [Concomitant]
     Dosage: 20 MG, QD
     Route: 048
  14. APREPITANT [Concomitant]

REACTIONS (28)
  - ALANINE AMINOTRANSFERASE INCREASED [None]
  - BLOOD CALCIUM DECREASED [None]
  - BLOOD GLUCOSE INCREASED [None]
  - BLOOD MAGNESIUM DECREASED [None]
  - BLOOD PRESSURE DECREASED [None]
  - BUNDLE BRANCH BLOCK LEFT [None]
  - COUGH [None]
  - DEVICE MALFUNCTION [None]
  - DIZZINESS [None]
  - DYSPNOEA [None]
  - GLYCOSYLATED HAEMOGLOBIN INCREASED [None]
  - GOITRE [None]
  - HAEMATOCRIT DECREASED [None]
  - HAEMOGLOBIN DECREASED [None]
  - HYPERHIDROSIS [None]
  - KIDNEY FIBROSIS [None]
  - LABORATORY TEST INTERFERENCE [None]
  - PLATELET COUNT DECREASED [None]
  - PLATELET COUNT INCREASED [None]
  - PNEUMONIA [None]
  - PRODUCT CONTAMINATION MICROBIAL [None]
  - PROTEIN TOTAL INCREASED [None]
  - PULMONARY FIBROSIS [None]
  - PULMONARY HILUM MASS [None]
  - RED BLOOD CELL COUNT DECREASED [None]
  - RENAL CYST [None]
  - SEPSIS [None]
  - TACHYCARDIA [None]
